FAERS Safety Report 19430241 (Version 2)
Quarter: 2021Q3

REPORT INFORMATION
  Report Type: Report from Study
  Country: None (occurrence: CO)
  Receive Date: 20210618
  Receipt Date: 20210716
  Transmission Date: 20211014
  Serious: Yes (Hospitalization, Other)
  Sender: FDA-Public Use
  Company Number: CO-ABBVIE-21K-036-3953862-00

PATIENT
  Age: 88 Year
  Sex: Male
  Weight: 70 kg

DRUGS (5)
  1. OMEPRAZOLE. [Suspect]
     Active Substance: OMEPRAZOLE
     Indication: PRODUCT USED FOR UNKNOWN INDICATION
     Route: 065
  2. HUMIRA [Suspect]
     Active Substance: ADALIMUMAB
     Indication: PSORIATIC ARTHROPATHY
     Route: 058
     Dates: start: 20090105
  3. ATORVASTATIN [Suspect]
     Active Substance: ATORVASTATIN
     Indication: PRODUCT USED FOR UNKNOWN INDICATION
     Route: 065
  4. HUMIRA [Suspect]
     Active Substance: ADALIMUMAB
     Indication: PSORIATIC ARTHROPATHY
     Route: 058
  5. HUMIRA [Suspect]
     Active Substance: ADALIMUMAB
     Route: 058

REACTIONS (14)
  - Arthralgia [Recovering/Resolving]
  - Arthralgia [Recovering/Resolving]
  - Hypoacusis [Recovering/Resolving]
  - Myocardial infarction [Recovering/Resolving]
  - Blood potassium decreased [Unknown]
  - Cardiac disorder [Recovering/Resolving]
  - Excessive cerumen production [Recovering/Resolving]
  - Sleep disorder [Recovering/Resolving]
  - Pruritus [Recovering/Resolving]
  - Diarrhoea [Recovering/Resolving]
  - Dizziness [Recovering/Resolving]
  - Discouragement [Recovering/Resolving]
  - Abdominal pain [Recovering/Resolving]
  - Hypokalaemia [Recovering/Resolving]

NARRATIVE: CASE EVENT DATE: 2021
